FAERS Safety Report 17559813 (Version 4)
Quarter: 2020Q2

REPORT INFORMATION
  Report Type: Report from Study
  Country: US (occurrence: US)
  Receive Date: 20200319
  Receipt Date: 20200615
  Transmission Date: 20200713
  Serious: Yes (Other)
  Sender: FDA-Public Use
  Company Number: US-ROCHE-2565513

PATIENT
  Sex: Male

DRUGS (7)
  1. RITUXAN [Suspect]
     Active Substance: RITUXIMAB
     Indication: MANTLE CELL LYMPHOMA
     Route: 065
  2. CALQUENCE [Concomitant]
     Active Substance: ACALABRUTINIB
  3. GEMZAR [Concomitant]
     Active Substance: GEMCITABINE HYDROCHLORIDE
  4. VITAMIN C [Concomitant]
     Active Substance: ASCORBIC ACID
  5. CANNABIDIOL [Concomitant]
     Active Substance: CANNABIDIOL
  6. VENCLEXTA [Suspect]
     Active Substance: VENETOCLAX
     Indication: MANTLE CELL LYMPHOMA
     Dosage: TAKE 1 TABLET BY MOUTH EVERY DAY
     Route: 048
  7. NORCO [Concomitant]
     Active Substance: ACETAMINOPHEN\HYDROCODONE BITARTRATE
     Indication: PRODUCT USED FOR UNKNOWN INDICATION
     Route: 065

REACTIONS (24)
  - Dysphonia [Unknown]
  - Device related infection [Unknown]
  - Red blood cell count decreased [Unknown]
  - Pleural effusion [Unknown]
  - Dizziness [Unknown]
  - Mental disorder [Unknown]
  - Loss of consciousness [Unknown]
  - Asthenia [Unknown]
  - Off label use [Unknown]
  - Haematocrit decreased [Unknown]
  - Alopecia [Unknown]
  - Micturition urgency [Unknown]
  - Fatigue [Unknown]
  - Malignant neoplasm progression [Unknown]
  - Haemoglobin decreased [Unknown]
  - Pain in extremity [Unknown]
  - Impaired healing [Unknown]
  - Pain [Unknown]
  - White blood cell count decreased [Unknown]
  - Blood iron decreased [Unknown]
  - Pollakiuria [Unknown]
  - Anaemia [Unknown]
  - Intentional product use issue [Unknown]
  - Constipation [Unknown]
